FAERS Safety Report 25909143 (Version 1)
Quarter: 2025Q4

REPORT INFORMATION
  Report Type: Spontaneous
  Country: US (occurrence: US)
  Receive Date: 20251011
  Receipt Date: 20251011
  Transmission Date: 20260118
  Serious: Yes (Life-Threatening, Hospitalization, Other)
  Sender: CARNEGIE PHARMACEUTICALS LLC
  Company Number: US-CARNEGIE-000078

PATIENT
  Age: 4 Month
  Sex: Male

DRUGS (3)
  1. VIGABATRIN [Suspect]
     Active Substance: VIGABATRIN
     Indication: Infantile spasms
     Route: 065
  2. VIGABATRIN [Suspect]
     Active Substance: VIGABATRIN
     Indication: Infantile spasms
     Route: 065
  3. VIGABATRIN [Suspect]
     Active Substance: VIGABATRIN
     Indication: Infantile spasms
     Route: 065

REACTIONS (4)
  - Hydrocephalus [Recovered/Resolved]
  - Hypotonia [Recovered/Resolved]
  - Respiratory failure [Recovered/Resolved]
  - Magnetic resonance imaging head abnormal [Recovered/Resolved]
